FAERS Safety Report 4853046-3 (Version None)
Quarter: 2005Q4

REPORT INFORMATION
  Report Type: 
  Country: None (occurrence: None)
  Receive Date: 20051212
  Receipt Date: 20051129
  Transmission Date: 20060501
  Serious: Yes (Other)
  Sender: FDA-Public Use
  Company Number: US200511003343

PATIENT
  Age: 65 Year
  Sex: Male

DRUGS (3)
  1. CIALIS [Suspect]
     Dosage: 20 MG,
     Dates: start: 20040301
  2. VALSARTAN [Concomitant]
  3. LIPITOR [Concomitant]

REACTIONS (4)
  - EYE HAEMORRHAGE [None]
  - FLUSHING [None]
  - RETINAL VEIN OCCLUSION [None]
  - VISUAL FIELD DEFECT [None]
